FAERS Safety Report 10522895 (Version 2)
Quarter: 2014Q4

REPORT INFORMATION
  Report Type: Spontaneous
  Country: JP (occurrence: JP)
  Receive Date: 20141016
  Receipt Date: 20141016
  Transmission Date: 20150528
  Serious: Yes (Hospitalization, Other)
  Sender: FDA-Public Use
  Company Number: JP-GLAXOSMITHKLINE-JP2014JPN001273

PATIENT
  Age: 73 Year
  Sex: Female

DRUGS (3)
  1. LOXONIN [Concomitant]
     Active Substance: LOXOPROFEN SODIUM
     Indication: HERPES ZOSTER
     Dosage: 60 MG, TID
     Route: 048
     Dates: start: 20140922, end: 20140925
  2. NEXIUM [Concomitant]
     Active Substance: ESOMEPRAZOLE MAGNESIUM
     Indication: HERPES ZOSTER
     Dosage: 10 MG, QD
     Route: 048
     Dates: start: 20140922, end: 20140925
  3. VALTREX [Suspect]
     Active Substance: VALACYCLOVIR HYDROCHLORIDE
     Indication: HERPES ZOSTER
     Route: 048
     Dates: start: 20140922, end: 20140925

REACTIONS (4)
  - Decreased appetite [Unknown]
  - Hypophagia [Unknown]
  - Acute kidney injury [Recovered/Resolved]
  - Fatigue [Unknown]

NARRATIVE: CASE EVENT DATE: 20140922
